FAERS Safety Report 17567750 (Version 1)
Quarter: 2020Q1

REPORT INFORMATION
  Report Type: Spontaneous
  Country: DE (occurrence: DE)
  Receive Date: 20200320
  Receipt Date: 20200320
  Transmission Date: 20200409
  Serious: Yes (Other)
  Sender: FDA-Public Use
  Company Number: DE-BAYER-2020-045640

PATIENT
  Age: 52 Year
  Sex: Female
  Weight: 103 kg

DRUGS (3)
  1. POLIOMYELITIS VACCINE NOS [Suspect]
     Active Substance: POLIOMYELITIS VACCINE
     Indication: IMMUNISATION
     Dosage: UNK
     Dates: start: 20071001
  2. PERTUSSIS VACCINE [Suspect]
     Active Substance: PERTUSSIS VACCINE
     Indication: IMMUNISATION
     Dosage: UNK
     Dates: start: 20071001
  3. GADOVIST [Suspect]
     Active Substance: GADOBUTROL
     Dosage: UNK
     Route: 042
     Dates: start: 20190201, end: 20190415

REACTIONS (12)
  - Intervertebral disc protrusion [Recovering/Resolving]
  - Neuralgia [Recovering/Resolving]
  - Weight increased [Recovered/Resolved with Sequelae]
  - Joint swelling [Recovering/Resolving]
  - Sleep disorder [Recovered/Resolved with Sequelae]
  - Skin discomfort [Recovering/Resolving]
  - Polyneuropathy [Recovering/Resolving]
  - Dyspepsia [Not Recovered/Not Resolved]
  - Tinnitus [Not Recovered/Not Resolved]
  - Muscular weakness [Not Recovered/Not Resolved]
  - Visual field defect [Not Recovered/Not Resolved]
  - Abdominal symptom [Not Recovered/Not Resolved]

NARRATIVE: CASE EVENT DATE: 2011
